FAERS Safety Report 8757562 (Version 2)
Quarter: 2012Q4

REPORT INFORMATION
  Report Type: 
  Country: NL (occurrence: NL)
  Receive Date: 20120828
  Receipt Date: 20121119
  Transmission Date: 20130627
  Serious: Yes (Other)
  Sender: FDA-Public Use
  Company Number: NL-PFIZER INC-2012206291

PATIENT
  Age: 31 Year
  Sex: Female
  Weight: 97.8 kg

DRUGS (8)
  1. GENOTROPIN [Suspect]
     Indication: GROWTH HORMONE DEFICIENCY
     Dosage: 0.8 mg, 7/wk
     Route: 058
     Dates: start: 20040603
  2. OESTROGEN [Concomitant]
     Indication: LUTEINISING HORMONE DEFICIENCY
     Dosage: UNK
     Dates: start: 19960412
  3. OESTROGEN [Concomitant]
     Indication: FOLLICLE-STIMULATING HORMONE DEFICIENCY
  4. OESTROGEN [Concomitant]
     Indication: HYPOGONADISM FEMALE
  5. CORTISONE ACETATE [Concomitant]
     Indication: BLOOD CORTICOTROPHIN DECREASED
     Dosage: UNK
     Dates: start: 19960412
  6. THYRAX [Concomitant]
     Indication: THYROID DISORDER
     Dosage: UNK
     Dates: start: 20060921
  7. THYRAX [Concomitant]
     Indication: PRIMARY HYPOTHYROIDISM
  8. DESMOPRESSIN [Concomitant]
     Indication: ANTIDIURETIC HORMONE DECREASED
     Dosage: UNK
     Dates: start: 20060412

REACTIONS (1)
  - Jaw cyst [Recovered/Resolved]
